FAERS Safety Report 18021766 (Version 1)
Quarter: 2020Q3

REPORT INFORMATION
  Report Type: Report from Study
  Country: IE (occurrence: IE)
  Receive Date: 20200714
  Receipt Date: 20200714
  Transmission Date: 20201103
  Serious: Yes (Other)
  Sender: FDA-Public Use
  Company Number: IE-JNJFOC-20200705024

PATIENT
  Sex: Female

DRUGS (6)
  1. SALAMOL                            /00139501/ [Concomitant]
     Dosage: 100 MCG
  2. ESOMEPRAZOLE. [Concomitant]
     Active Substance: ESOMEPRAZOLE MAGNESIUM
  3. TRAMADOL. [Concomitant]
     Active Substance: TRAMADOL
  4. STELARA [Suspect]
     Active Substance: USTEKINUMAB
  5. SERETIDE [Concomitant]
     Active Substance: FLUTICASONE PROPIONATE\SALMETEROL XINAFOATE
     Dosage: 250 MCG
  6. STELARA [Suspect]
     Active Substance: USTEKINUMAB
     Indication: PSORIASIS
     Route: 058
     Dates: start: 20200409

REACTIONS (1)
  - Hepatitis [Not Recovered/Not Resolved]
